FAERS Safety Report 25596913 (Version 4)
Quarter: 2025Q4

REPORT INFORMATION
  Report Type: Spontaneous
  Country: US (occurrence: US)
  Receive Date: 20250723
  Receipt Date: 20251031
  Transmission Date: 20260118
  Serious: Yes (Other)
  Sender: MALLINCKRODT
  Company Number: US-MALLINCKRODT-MNK202504340

PATIENT
  Sex: Male

DRUGS (7)
  1. CORTICOTROPIN [Suspect]
     Active Substance: CORTICOTROPIN
     Indication: Illness
     Dosage: 80 UNITS
     Route: 058
  2. PREDNISONE [Suspect]
     Active Substance: PREDNISONE
     Indication: Product used for unknown indication
     Dosage: UNKNOWN
  3. HYDROCHLOROTHIAZIDE [Concomitant]
     Active Substance: HYDROCHLOROTHIAZIDE
     Dosage: UNKNOWN
  4. VALSARTAN [Concomitant]
     Active Substance: VALSARTAN
     Dosage: UNKNOWN
  5. AMLODIPINE BESYLATE [Concomitant]
     Active Substance: AMLODIPINE BESYLATE
     Dosage: UNKNOWN
  6. ALBUTEROL\IPRATROPIUM [Concomitant]
     Active Substance: ALBUTEROL\IPRATROPIUM
     Dosage: UNKNOWN
  7. DEVICE [Concomitant]
     Active Substance: DEVICE
     Dosage: UNKNOWN

REACTIONS (7)
  - Cataract [Not Recovered/Not Resolved]
  - Photophobia [Unknown]
  - Feeling abnormal [Unknown]
  - Discomfort [Unknown]
  - Injection site haemorrhage [Unknown]
  - Injection site pain [Unknown]
  - Underdose [Unknown]
